FAERS Safety Report 7210783-3 (Version None)
Quarter: 2010Q4

REPORT INFORMATION
  Report Type: 
  Country: None (occurrence: None)
  Receive Date: 20101126
  Receipt Date: 20101013
  Transmission Date: 20110411
  Serious: No
  Sender: FDA-Public Use
  Company Number: 316512

PATIENT
  Age: 79 Year
  Sex: Female

DRUGS (3)
  1. VICTOZA [Suspect]
     Indication: TYPE 2 DIABETES MELLITUS
     Dosage: 0.6 MG, QD, SUBCUTANEOUS
     Route: 058
     Dates: start: 20101008
  2. PRANDIN /00882701/ (DEFLAZACORT) [Concomitant]
  3. ARIMIDEX [Concomitant]

REACTIONS (1)
  - NECK PAIN [None]
